FAERS Safety Report 7945763-3 (Version None)
Quarter: 2011Q4

REPORT INFORMATION
  Report Type: 
  Country: None (occurrence: None)
  Receive Date: 20111129
  Receipt Date: 20110113
  Transmission Date: 20120403
  Serious: No
  Sender: FDA-Public Use
  Company Number: US-GLAXOSMITHKLINE-A0906744A

PATIENT
  Sex: Female

DRUGS (3)
  1. LANOXIN [Suspect]
     Indication: PRODUCT USED FOR UNKNOWN INDICATION
     Route: 065
     Dates: end: 20101001
  2. TOPROL-XL [Concomitant]
  3. COUMADIN [Concomitant]

REACTIONS (2)
  - CARDIOACTIVE DRUG LEVEL DECREASED [None]
  - DYSPNOEA [None]
